FAERS Safety Report 10470767 (Version 2)
Quarter: 2014Q4

REPORT INFORMATION
  Report Type: Spontaneous
  Country: US (occurrence: US)
  Receive Date: 20140923
  Receipt Date: 20141105
  Transmission Date: 20150528
  Serious: Yes (Death, Life-Threatening, Hospitalization, Other)
  Sender: FDA-Public Use
  Company Number: US-009507513-1409USA011178

PATIENT
  Sex: Male
  Weight: 108.84 kg

DRUGS (1)
  1. JANUVIA [Suspect]
     Active Substance: SITAGLIPTIN PHOSPHATE
     Indication: TYPE 2 DIABETES MELLITUS
     Dosage: 100 MG, QD
     Route: 048
     Dates: start: 20110211, end: 20120728

REACTIONS (18)
  - Bile duct stent insertion [Unknown]
  - Cholelithiasis [Unknown]
  - Pancreaticoduodenectomy [Unknown]
  - Nephrolithiasis [Unknown]
  - Bile duct stenosis [Unknown]
  - Chest pain [Recovered/Resolved]
  - Diabetes mellitus [Unknown]
  - Spinal osteoarthritis [Unknown]
  - Lymphadenopathy [Unknown]
  - Chronic kidney disease [Not Recovered/Not Resolved]
  - Drug ineffective [Unknown]
  - Adenocarcinoma pancreas [Unknown]
  - Biliary sphincterotomy [Unknown]
  - Salmonellosis [Unknown]
  - Aortic arteriosclerosis [Unknown]
  - Cataract operation [Unknown]
  - Death [Fatal]
  - Autoimmune hepatitis [Unknown]

NARRATIVE: CASE EVENT DATE: 201207
